FAERS Safety Report 13955957 (Version 2)
Quarter: 2017Q3

REPORT INFORMATION
  Report Type: Spontaneous
  Country: IT (occurrence: IT)
  Receive Date: 20170911
  Receipt Date: 20170915
  Transmission Date: 20171128
  Serious: Yes (Other)
  Sender: FDA-Public Use
  Company Number: IT-PFIZER INC-2017391098

PATIENT
  Age: 66 Year
  Sex: Female

DRUGS (8)
  1. METHYLPREDNISOLONE ACETATE. [Suspect]
     Active Substance: METHYLPREDNISOLONE ACETATE
     Indication: PAIN
  2. DICLOFENAC [Concomitant]
     Active Substance: DICLOFENAC
     Indication: RHEUMATOID ARTHRITIS
     Dosage: 75 MG, 2X/DAY
  3. HYALURONIC ACID [Suspect]
     Active Substance: HYALURONIC ACID
     Indication: RHEUMATOID ARTHRITIS
     Dosage: 20 MG, UNK
     Route: 014
  4. HYALURONIC ACID [Suspect]
     Active Substance: HYALURONIC ACID
     Indication: PAIN
  5. PREDNISONE. [Concomitant]
     Active Substance: PREDNISONE
     Indication: RHEUMATOID ARTHRITIS
     Dosage: 30 MG, DAILY
  6. METHYLPREDNISOLONE ACETATE. [Suspect]
     Active Substance: METHYLPREDNISOLONE ACETATE
     Indication: RHEUMATOID ARTHRITIS
     Dosage: 40 MG, UNK
     Route: 014
  7. HYDROXYCHLOROQUINE SULFATE. [Concomitant]
     Active Substance: HYDROXYCHLOROQUINE SULFATE
     Indication: RHEUMATOID ARTHRITIS
     Dosage: 200 MG, 2X/DAY
  8. PREDNISONE. [Concomitant]
     Active Substance: PREDNISONE
     Dosage: 60 MG, DAILY

REACTIONS (2)
  - Pulmonary embolism [Recovered/Resolved]
  - Fat embolism [Recovered/Resolved]
